FAERS Safety Report 9401933 (Version 1)
Quarter: 2013Q3

REPORT INFORMATION
  Report Type: Spontaneous
  Country: US (occurrence: US)
  Receive Date: 20130716
  Receipt Date: 20130716
  Transmission Date: 20140515
  Serious: No
  Sender: FDA-Public Use
  Company Number: US-PFIZER INC-2013204769

PATIENT
  Sex: Male

DRUGS (1)
  1. GABAPENTIN [Suspect]
     Indication: HEADACHE
     Dosage: 1200 MG, 3X/DAY

REACTIONS (5)
  - Off label use [Unknown]
  - Neuralgia [Unknown]
  - Pain [Unknown]
  - Headache [Unknown]
  - Drug ineffective for unapproved indication [Unknown]
